FAERS Safety Report 22125897 (Version 1)
Quarter: 2023Q1

REPORT INFORMATION
  Report Type: Spontaneous
  Country: US (occurrence: None)
  Receive Date: 20230321
  Receipt Date: 20230321
  Transmission Date: 20230418
  Serious: No
  Sender: FDA-Public Use
  Company Number: None

PATIENT

DRUGS (3)
  1. VINCRISTINE SULFATE [Suspect]
     Active Substance: VINCRISTINE SULFATE
  2. PREDNISOLONE [Suspect]
     Active Substance: PREDNISOLONE
  3. CYTARABINE [Suspect]
     Active Substance: CYTARABINE

REACTIONS (1)
  - Incorrect route of product administration [None]
